FAERS Safety Report 5408303-9 (Version None)
Quarter: 2007Q3

REPORT INFORMATION
  Report Type: 
  Country: None (occurrence: None)
  Receive Date: 20070803
  Receipt Date: 20070718
  Transmission Date: 20080115
  Serious: Yes (Other)
  Sender: FDA-Public Use
  Company Number: DSA_30183_2007

PATIENT
  Sex: Male

DRUGS (3)
  1. TAVOR [Suspect]
     Dosage: 0.5 MG QD ORAL
     Route: 048
     Dates: start: 20070621
  2. TREVILOR      (TREVILOR RETARD) [Suspect]
     Indication: DEPRESSION
     Dosage: 375 MG QD ORAL
     Route: 048
     Dates: start: 20070401
  3. MIRTAZAPINE [Suspect]
     Indication: DEPRESSION
     Dosage: 45 MG QD ORAL
     Route: 048
     Dates: start: 20070401

REACTIONS (2)
  - BLOOD CREATINE PHOSPHOKINASE INCREASED [None]
  - GAMMA-GLUTAMYLTRANSFERASE INCREASED [None]
